FAERS Safety Report 5596140-4 (Version None)
Quarter: 2008Q1

REPORT INFORMATION
  Report Type: 
  Country: None (occurrence: None)
  Receive Date: 20080118
  Receipt Date: 20080111
  Transmission Date: 20080703
  Serious: Yes (Hospitalization)
  Sender: FDA-Public Use
  Company Number: JP-ROXANE LABORATORIES, INC-2007-BP-26383BP

PATIENT
  Sex: Female
  Weight: 62 kg

DRUGS (9)
  1. PRAMIPEXOLE IR (BLIND) [Suspect]
     Indication: PARKINSON'S DISEASE
     Route: 048
     Dates: start: 20071108
  2. PRAMIPEXOLE ER (BLIND) [Suspect]
     Indication: PARKINSON'S DISEASE
     Route: 048
     Dates: start: 20071108
  3. PLACEBO (BLIND) [Suspect]
     Indication: PARKINSON'S DISEASE
     Route: 048
     Dates: start: 20071108
  4. NITRAZEPAM [Suspect]
     Indication: INSOMNIA
     Route: 048
     Dates: start: 20070601
  5. LORAZEPAM [Suspect]
     Indication: INSOMNIA
     Route: 048
     Dates: start: 20070601
  6. OMEPRAL [Concomitant]
     Indication: OESOPHAGITIS
     Route: 048
     Dates: start: 20070601
  7. NU-LOTAN [Concomitant]
     Indication: HYPERTENSION
     Route: 048
     Dates: start: 20070601
  8. AMLODIPINE BESYLATE [Concomitant]
     Indication: HYPERTENSION
     Route: 048
     Dates: start: 20070601
  9. GASMOTIN [Concomitant]
     Indication: OESOPHAGITIS
     Route: 048
     Dates: start: 20070601

REACTIONS (2)
  - FALL [None]
  - LUMBAR VERTEBRAL FRACTURE [None]
